FAERS Safety Report 11358944 (Version 1)
Quarter: 2015Q3

REPORT INFORMATION
  Report Type: Report from Study
  Country: NL (occurrence: NL)
  Receive Date: 20150807
  Receipt Date: 20150807
  Transmission Date: 20151125
  Serious: Yes (Life-Threatening, Hospitalization)
  Sender: FDA-Public Use
  Company Number: NL-ABBVIE-15P-114-1439073-00

PATIENT
  Sex: Female
  Weight: 91 kg

DRUGS (1)
  1. DUODOPA [Suspect]
     Active Substance: CARBIDOPA\LEVODOPA
     Indication: PARKINSON^S DISEASE
     Dosage: 20/5MG/ML MORNING DOSE: 5.0 CONTINUOUS DOSE: 5.5 EXTRA DOSE: 3.0 NIGHT DOSE: 3.5
     Route: 050
     Dates: start: 20150202

REACTIONS (1)
  - Bone neoplasm [Not Recovered/Not Resolved]
